FAERS Safety Report 9842800 (Version 1)
Quarter: 2013Q4

REPORT INFORMATION
  Report Type: Spontaneous
  Country: US (occurrence: None)
  Receive Date: 20131219
  Receipt Date: 20131219
  Transmission Date: 20140711
  Serious: Yes (Death)
  Sender: FDA-Public Use
  Company Number: 163-20785-13100104

PATIENT
  Age: 55 Year
  Sex: Male

DRUGS (6)
  1. THALOMID (THALIDOMIDE) (CAPSULES) [Suspect]
     Indication: MALIGNANT MELANOMA
     Dosage: 100 MG, 1 IN 1 D, PO
     Route: 048
     Dates: start: 20130529
  2. TEMODAR (TEMOZOLOMIDE) [Concomitant]
  3. FENTANYL (FENTANYL) [Concomitant]
  4. OXYCODONE HCL (OXYCODONE HYDROCHLORIDE) [Concomitant]
  5. MVI (MVI) [Concomitant]
  6. TYLENOL (PARACETAMOL) [Concomitant]

REACTIONS (1)
  - Death [None]
